FAERS Safety Report 12805379 (Version 4)
Quarter: 2019Q1

REPORT INFORMATION
  Report Type: Spontaneous
  Country: FR (occurrence: FR)
  Receive Date: 20161004
  Receipt Date: 20190203
  Transmission Date: 20190417
  Serious: Yes (Death, Life-Threatening, Hospitalization, Other)
  Sender: FDA-Public Use
  Company Number: FR-ACCORD-044415

PATIENT
  Age: 34 Year
  Sex: Male

DRUGS (5)
  1. TROPATEPINE/TROPATEPINE HYDROCHLORIDE [Suspect]
     Active Substance: TROPATEPINE HYDROCHLORIDE
     Indication: BIPOLAR DISORDER
     Dates: start: 20120605
  2. LOXAPINE. [Suspect]
     Active Substance: LOXAPINE
     Indication: BIPOLAR DISORDER
     Dosage: +100 MG IF NEEDED
     Dates: start: 20120614
  3. QUETIAPINE. [Suspect]
     Active Substance: QUETIAPINE
     Indication: BIPOLAR DISORDER
     Dosage: EXTENDED RELEASE
     Route: 048
     Dates: start: 20120605
  4. DIAZEPAM. [Concomitant]
     Active Substance: DIAZEPAM
     Indication: BIPOLAR DISORDER
  5. VALPROIC ACID. [Concomitant]
     Active Substance: VALPROIC ACID
     Indication: BIPOLAR DISORDER

REACTIONS (18)
  - Cardiac arrest [Fatal]
  - Pneumonia pseudomonal [Fatal]
  - Intestinal ischaemia [Fatal]
  - Candida infection [Fatal]
  - Gastrointestinal necrosis [None]
  - Staphylococcal bacteraemia [Fatal]
  - Metabolic acidosis [None]
  - Candida pneumonia [None]
  - Multiple-drug resistance [None]
  - Gastric haemorrhage [Fatal]
  - Fungaemia [None]
  - Septic shock [Fatal]
  - Subileus [Fatal]
  - Large intestine perforation [Fatal]
  - Multiple organ dysfunction syndrome [Fatal]
  - Renal replacement therapy [None]
  - Necrotising colitis [Fatal]
  - Acute kidney injury [None]

NARRATIVE: CASE EVENT DATE: 20120622
